FAERS Safety Report 8785821 (Version 2)
Quarter: 2012Q4

REPORT INFORMATION
  Report Type: 
  Country: US (occurrence: US)
  Receive Date: 20120914
  Receipt Date: 20120914
  Transmission Date: 20130627
  Serious: No
  Sender: FDA-Public Use
  Company Number: US-MYLANLABS-2012S1012149

PATIENT
  Age: 72 Year
  Sex: Female
  Weight: 78.02 kg

DRUGS (4)
  1. CLOPIDOGREL TABLETS USP [Suspect]
     Indication: PERIPHERAL VASCULAR DISORDER
     Route: 048
     Dates: start: 20120523, end: 20120611
  2. NORVASC [Concomitant]
     Indication: BLOOD PRESSURE INCREASED
  3. BENICAR [Concomitant]
     Indication: BLOOD PRESSURE INCREASED
  4. MULTIVITAMIN [Concomitant]

REACTIONS (1)
  - Gout [Recovering/Resolving]
